FAERS Safety Report 20711260 (Version 3)
Quarter: 2022Q4

REPORT INFORMATION
  Report Type: Spontaneous
  Country: US (occurrence: US)
  Receive Date: 20220414
  Receipt Date: 20221102
  Transmission Date: 20230112
  Serious: No
  Sender: FDA-Public Use
  Company Number: US-MYOVANT SCIENCES GMBH-2022MYSCI0200026

PATIENT
  Sex: Male

DRUGS (8)
  1. ORGOVYX [Suspect]
     Active Substance: RELUGOLIX
     Indication: Prostate cancer
     Dosage: 360 MILLIGRAM, ONE TIME DOSE
     Route: 048
     Dates: start: 20220120, end: 20220120
  2. ORGOVYX [Suspect]
     Active Substance: RELUGOLIX
     Dosage: 120 MILLIGRAM, QD
     Route: 048
     Dates: start: 20220121
  3. ORGOVYX [Suspect]
     Active Substance: RELUGOLIX
     Dosage: UNK
  4. ORGOVYX [Suspect]
     Active Substance: RELUGOLIX
     Dosage: UNK
  5. ORGOVYX [Suspect]
     Active Substance: RELUGOLIX
     Dosage: UNK
  6. ORGOVYX [Suspect]
     Active Substance: RELUGOLIX
     Dosage: UNK
  7. ORGOVYX [Suspect]
     Active Substance: RELUGOLIX
     Dosage: UNK
  8. OMEPRAZOLE [Suspect]
     Active Substance: OMEPRAZOLE
     Indication: Respiration abnormal
     Route: 065

REACTIONS (22)
  - Liver function test abnormal [Not Recovered/Not Resolved]
  - Renal function test abnormal [Unknown]
  - Rash macular [Unknown]
  - Somnolence [Unknown]
  - Bradyphrenia [Unknown]
  - Pain [Unknown]
  - Fat tissue increased [Unknown]
  - Dehydration [Unknown]
  - Sinus disorder [Unknown]
  - Dyspnoea [Unknown]
  - Melanocytic naevus [Recovered/Resolved]
  - Fatigue [Not Recovered/Not Resolved]
  - Hot flush [Not Recovered/Not Resolved]
  - Arthralgia [Not Recovered/Not Resolved]
  - Musculoskeletal stiffness [Unknown]
  - Myalgia [Unknown]
  - Insomnia [Unknown]
  - Loss of libido [Unknown]
  - Dysuria [Not Recovered/Not Resolved]
  - Nasal congestion [Unknown]
  - Throat irritation [Unknown]
  - Seasonal allergy [Unknown]
